FAERS Safety Report 22161458 (Version 1)
Quarter: 2023Q1

REPORT INFORMATION
  Report Type: Spontaneous
  Country: GR (occurrence: GR)
  Receive Date: 20230331
  Receipt Date: 20230331
  Transmission Date: 20230418
  Serious: Yes (Other)
  Sender: FDA-Public Use
  Company Number: GR-UCBSA-2023015098

PATIENT
  Age: 65 Year
  Sex: Male

DRUGS (2)
  1. LEVETIRACETAM [Suspect]
     Active Substance: LEVETIRACETAM
     Indication: Status epilepticus
     Dosage: 1000 MILLIGRAM, 2X/DAY (BID)
  2. VALPROIC ACID [Suspect]
     Active Substance: VALPROIC ACID
     Indication: Status epilepticus
     Dosage: 1500 MILLIGRAM, 2X/DAY (BID)

REACTIONS (3)
  - Major depression [Recovering/Resolving]
  - Sleep disorder [Not Recovered/Not Resolved]
  - Withdrawal syndrome [Unknown]
